FAERS Safety Report 5452754-3 (Version None)
Quarter: 2007Q3

REPORT INFORMATION
  Report Type: 
  Country: None (occurrence: None)
  Receive Date: 20070914
  Receipt Date: 20070907
  Transmission Date: 20080115
  Serious: Yes (Other)
  Sender: FDA-Public Use
  Company Number: US-MERCK-0709USA00965

PATIENT
  Age: 57 Year
  Sex: Female

DRUGS (4)
  1. FOSAMAX [Suspect]
     Indication: OSTEOPOROSIS
     Route: 048
     Dates: start: 20040101, end: 20040101
  2. FOSAMAX [Suspect]
     Route: 048
     Dates: start: 20070801, end: 20070101
  3. FOSAMAX [Suspect]
     Route: 048
     Dates: start: 20070901
  4. ACTONEL [Concomitant]
     Route: 065
     Dates: start: 20040101

REACTIONS (4)
  - APHONIA [None]
  - GASTROINTESTINAL DISORDER [None]
  - GASTROOESOPHAGEAL REFLUX DISEASE [None]
  - HIATUS HERNIA [None]
